FAERS Safety Report 4329561-8 (Version None)
Quarter: 2004Q1

REPORT INFORMATION
  Report Type: 
  Country: None (occurrence: None)
  Receive Date: 20040324
  Receipt Date: 20040324
  Transmission Date: 20041129
  Serious: Yes (Other)
  Sender: FDA-Public Use
  Company Number: None

PATIENT
  Age: 10 Year
  Sex: Female
  Weight: 60 kg

DRUGS (1)
  1. KID'S CREST [Suspect]

REACTIONS (3)
  - DERMATITIS [None]
  - DRUG INEFFECTIVE [None]
  - RASH [None]
